FAERS Safety Report 10874659 (Version 1)
Quarter: 2015Q1

REPORT INFORMATION
  Report Type: Spontaneous
  Country: IT (occurrence: IT)
  Receive Date: 20150227
  Receipt Date: 20150227
  Transmission Date: 20150721
  Serious: Yes (Other)
  Sender: FDA-Public Use
  Company Number: IT-MYLANLABS-2015M1006364

PATIENT

DRUGS (7)
  1. MIDAZOLAM [Concomitant]
     Active Substance: MIDAZOLAM\MIDAZOLAM HYDROCHLORIDE
     Dosage: 3MG
     Route: 042
  2. DESFLURANE. [Concomitant]
     Active Substance: DESFLURANE
     Route: 065
  3. PROPOFOL. [Concomitant]
     Active Substance: PROPOFOL
     Dosage: 200MG
     Route: 065
  4. FENTANYL. [Suspect]
     Active Substance: FENTANYL
     Indication: ANAESTHESIA
     Dosage: 0.2MG
     Route: 065
  5. RANITIDINE [Concomitant]
     Active Substance: RANITIDINE\RANITIDINE HYDROCHLORIDE
     Dosage: 50MG
     Route: 065
  6. ROCURONIUM BROMIDE. [Concomitant]
     Active Substance: ROCURONIUM BROMIDE
     Dosage: 70MG
     Route: 065
  7. ATROPINE [Suspect]
     Active Substance: ATROPINE
     Dosage: 0.5 MG
     Route: 065

REACTIONS (2)
  - Atrioventricular block [Recovered/Resolved]
  - Sinus bradycardia [Recovered/Resolved]
